FAERS Safety Report 20836578 (Version 1)
Quarter: 2022Q2

REPORT INFORMATION
  Report Type: Spontaneous
  Country: ES (occurrence: ES)
  Receive Date: 20220517
  Receipt Date: 20220517
  Transmission Date: 20220720
  Serious: Yes (Death, Other)
  Sender: FDA-Public Use
  Company Number: ES-ROCHE-2984566

PATIENT
  Sex: Female

DRUGS (2)
  1. MVASI [Suspect]
     Active Substance: BEVACIZUMAB-AWWB
     Indication: Breast cancer metastatic
     Dosage: 10 MILLIGRAM PER KILOGRAM
     Route: 042
     Dates: start: 20210601, end: 20210601
  2. CAPECITABINE [Suspect]
     Active Substance: CAPECITABINE
     Indication: Breast cancer metastatic
     Dosage: UNK
     Route: 048
     Dates: start: 20191004, end: 20200720

REACTIONS (2)
  - Breast cancer metastatic [Fatal]
  - Toxicity to various agents [Unknown]
